FAERS Safety Report 13244584 (Version 1)
Quarter: 2017Q1

REPORT INFORMATION
  Report Type: Spontaneous
  Country: US (occurrence: US)
  Receive Date: 20170216
  Receipt Date: 20170216
  Transmission Date: 20170428
  Serious: No
  Sender: FDA-Public Use
  Company Number: US-JAZZ-2017-US-000697

PATIENT
  Sex: Female

DRUGS (47)
  1. XYREM [Suspect]
     Active Substance: SODIUM OXYBATE
     Dosage: 4.5G, BID
     Route: 048
     Dates: start: 201408
  2. BUSPIRONE HCL [Concomitant]
     Active Substance: BUSPIRONE HYDROCHLORIDE
  3. ADRENAL [Concomitant]
     Active Substance: EPINEPHRINE
  4. COENZYME Q10 [Concomitant]
     Active Substance: UBIDECARENONE
  5. D-RIBOSE [Concomitant]
     Active Substance: DIETARY SUPPLEMENT
  6. SINGULAIR [Concomitant]
     Active Substance: MONTELUKAST SODIUM
  7. FLONASE                            /00908302/ [Concomitant]
     Active Substance: MOMETASONE FUROATE
  8. XYREM [Suspect]
     Active Substance: SODIUM OXYBATE
     Indication: NARCOLEPSY
     Dosage: 4.5G, BID
     Route: 048
     Dates: start: 201304, end: 2013
  9. XYREM [Suspect]
     Active Substance: SODIUM OXYBATE
     Dosage: 2.25 G, BID
     Route: 048
     Dates: start: 201406, end: 2014
  10. HORIZANT [Concomitant]
     Active Substance: GABAPENTIN ENACARBIL
  11. ZOLOFT [Concomitant]
     Active Substance: SERTRALINE HYDROCHLORIDE
  12. MALIC ACID [Concomitant]
     Active Substance: MALIC ACID
  13. PROBIOTIC                          /06395501/ [Concomitant]
     Active Substance: BIFIDOBACTERIUM ANIMALIS SUBSP. LACTIS
  14. L-LYSINE                           /00919901/ [Concomitant]
  15. RHODIOLA                           /02220301/ [Concomitant]
  16. VITAMIN B12 [Concomitant]
     Active Substance: CYANOCOBALAMIN
  17. MELOXICAM. [Concomitant]
     Active Substance: MELOXICAM
  18. CLONIDINE. [Concomitant]
     Active Substance: CLONIDINE
  19. SUDAFED [Concomitant]
     Active Substance: PSEUDOEPHEDRINE HYDROCHLORIDE
  20. CLARITIN [Concomitant]
     Active Substance: LORATADINE
  21. L-CARNITINE                        /00878601/ [Concomitant]
     Active Substance: LEVOCARNITINE
  22. VITAMIN B COMPLEX [Concomitant]
     Active Substance: CYANOCOBALAMIN\DEXPANTHENOL\NIACINAMIDE\PYRIDOXINE HYDROCHLORIDE\RIBOFLAVIN 5^-PHOSPHATE SODIUM\THIAMINE HYDROCHLORIDE\VITAMIN B COMPLEX
  23. VITAMIN C [Concomitant]
     Active Substance: ASCORBIC ACID
  24. CALCIUM + VIT D [Concomitant]
     Active Substance: CALCIUM\VITAMIN D
  25. FISH OIL [Concomitant]
     Active Substance: FISH OIL
  26. VITAMIN D                          /00107901/ [Concomitant]
     Active Substance: ERGOCALCIFEROL
  27. POTASSIUM GLUCONATE [Concomitant]
     Active Substance: POTASSIUM GLUCONATE
  28. TEMAZEPAM. [Concomitant]
     Active Substance: TEMAZEPAM
  29. COMBIVENT [Concomitant]
     Active Substance: ALBUTEROL SULFATE\IPRATROPIUM BROMIDE
  30. PANTOPRAZOLE SODIUM. [Concomitant]
     Active Substance: PANTOPRAZOLE SODIUM
  31. CYMBALTA [Concomitant]
     Active Substance: DULOXETINE HYDROCHLORIDE
  32. TRAZODONE [Concomitant]
     Active Substance: TRAZODONE HYDROCHLORIDE
  33. LATUDA [Concomitant]
     Active Substance: LURASIDONE HYDROCHLORIDE
  34. MUCINEX D [Concomitant]
     Active Substance: GUAIFENESIN\PSEUDOEPHEDRINE HYDROCHLORIDE
  35. GABAPENTIN. [Concomitant]
     Active Substance: GABAPENTIN
  36. WILLOW BARK [Concomitant]
  37. NUVIGIL [Concomitant]
     Active Substance: ARMODAFINIL
  38. HYDROCODONE BITARTRATE. [Concomitant]
     Active Substance: HYDROCODONE BITARTRATE
  39. MELATONIN [Concomitant]
     Active Substance: MELATONIN
  40. ASTELIN                            /00085801/ [Concomitant]
     Active Substance: AZELASTINE HYDROCHLORIDE
  41. L-METHYLFOLATE CALCIUM [Concomitant]
     Active Substance: LEVOMEFOLATE CALCIUM
  42. ALLEGRA ALLERGY [Concomitant]
     Active Substance: FEXOFENADINE HYDROCHLORIDE
  43. MAGNESIUM [Concomitant]
     Active Substance: MAGNESIUM
  44. ECHINACEA PLUS                     /05507601/ [Concomitant]
  45. SPIRIVA [Concomitant]
     Active Substance: TIOTROPIUM BROMIDE MONOHYDRATE
  46. SYMBICORT [Concomitant]
     Active Substance: BUDESONIDE\FORMOTEROL FUMARATE DIHYDRATE
  47. GLUCOSAMINE CHONDROITIN            /01430901/ [Concomitant]

REACTIONS (1)
  - Alopecia [Not Recovered/Not Resolved]
